FAERS Safety Report 15739028 (Version 1)
Quarter: 2018Q4

REPORT INFORMATION
  Report Type: Spontaneous
  Country: GB (occurrence: GB)
  Receive Date: 20181219
  Receipt Date: 20181219
  Transmission Date: 20190205
  Serious: No
  Sender: FDA-Public Use
  Company Number: GB-B. BRAUN MEDICAL INC.-2060359

PATIENT
  Age: 34 Year
  Sex: Female

DRUGS (10)
  1. NAPROXEN. [Concomitant]
     Active Substance: NAPROXEN
     Dates: start: 20180713
  2. BACLOFEN. [Concomitant]
     Active Substance: BACLOFEN
     Dates: start: 20180713
  3. MEFENAMIC ACID. [Concomitant]
     Active Substance: MEFENAMIC ACID
     Dates: start: 20180713
  4. PREGABALIN. [Concomitant]
     Active Substance: PREGABALIN
     Dates: start: 20180713
  5. SALBUTAMOL [Concomitant]
     Active Substance: ALBUTEROL
     Dates: start: 20180713
  6. CLENIL MODULITE (BECLOMETASONE DIPROPIONATE) [Concomitant]
     Dates: start: 20180713
  7. METRONIDAZOLE INJECTION USP (5 MG/ML) IN PAB? PLASTIC CONTAINER (NDA 0 [Suspect]
     Active Substance: METRONIDAZOLE
     Dates: start: 20180713
  8. PROMAZINE [Concomitant]
     Active Substance: PROMAZINE
     Dates: start: 20180713
  9. OMEPRAZOLE. [Concomitant]
     Active Substance: OMEPRAZOLE
     Dates: start: 20180713
  10. SERTRALINE [Concomitant]
     Active Substance: SERTRALINE HYDROCHLORIDE
     Dates: start: 20180713

REACTIONS (1)
  - Rash [Recovered/Resolved]

NARRATIVE: CASE EVENT DATE: 20180713
